FAERS Safety Report 9394284 (Version 1)
Quarter: 2013Q3

REPORT INFORMATION
  Report Type: Spontaneous
  Country: DE (occurrence: DE)
  Receive Date: 20130711
  Receipt Date: 20130711
  Transmission Date: 20140515
  Serious: Yes (Other)
  Sender: FDA-Public Use
  Company Number: DE-ACTELION-A-CH2013-85029

PATIENT
  Sex: Female

DRUGS (8)
  1. TRACLEER [Suspect]
     Indication: SKIN ULCER
     Dosage: 62.5 MG, BID
     Route: 048
     Dates: start: 20130306, end: 20130404
  2. TRACLEER [Suspect]
     Dosage: 125 MG, BID
     Route: 048
     Dates: start: 20130405
  3. LEFLUNOMIDE [Concomitant]
     Indication: ARTHRITIS
     Dosage: UNK
     Dates: start: 20110824
  4. PREDNISOLONE [Concomitant]
     Indication: ARTHRITIS
     Dosage: UNK
     Dates: start: 20090625
  5. CELECOXIB [Concomitant]
     Indication: ARTHRITIS
     Dosage: UNK
     Dates: start: 20101007
  6. AMLODIPINE [Concomitant]
     Indication: SCLERODERMA
     Dosage: UNK
     Dates: start: 20090707
  7. RAMIPRIL [Concomitant]
     Indication: SCLERODERMA
     Dosage: UNK
     Dates: start: 20090625
  8. PANTOPRAZOLE [Concomitant]
     Indication: SCLERODERMA
     Dosage: UNK
     Dates: start: 20070707

REACTIONS (3)
  - Eye haemorrhage [Unknown]
  - Oesophageal motility disorder [Unknown]
  - Vomiting [Unknown]
